FAERS Safety Report 7464319-2 (Version None)
Quarter: 2011Q2

REPORT INFORMATION
  Report Type: 
  Country: None (occurrence: None)
  Receive Date: 20110509
  Receipt Date: 20110428
  Transmission Date: 20111010
  Serious: Yes (Hospitalization)
  Sender: FDA-Public Use
  Company Number: US-BIOGENIDEC-2011BI014326

PATIENT
  Age: 54 Year
  Sex: Male
  Weight: 145 kg

DRUGS (1)
  1. AVONEX [Suspect]
     Indication: MULTIPLE SCLEROSIS
     Route: 030
     Dates: start: 20101122

REACTIONS (2)
  - GASTRIC OPERATION [None]
  - WEIGHT DECREASED [None]
